FAERS Safety Report 16175551 (Version 1)
Quarter: 2019Q2

REPORT INFORMATION
  Report Type: Spontaneous
  Country: US (occurrence: US)
  Receive Date: 20190409
  Receipt Date: 20190409
  Transmission Date: 20190711
  Serious: No
  Sender: FDA-Public Use
  Company Number: US-ASTRAZENECA-2019SE40460

PATIENT
  Age: 46 Year
  Sex: Female

DRUGS (2)
  1. NEXIUM [Suspect]
     Active Substance: ESOMEPRAZOLE MAGNESIUM
     Indication: GASTROOESOPHAGEAL REFLUX DISEASE
     Route: 048
  2. HUMIRA [Suspect]
     Active Substance: ADALIMUMAB
     Indication: PSORIATIC ARTHROPATHY
     Route: 058
     Dates: start: 20190123

REACTIONS (18)
  - Musculoskeletal pain [Unknown]
  - Abdominal pain upper [Unknown]
  - Vertigo [Unknown]
  - Angina pectoris [Unknown]
  - Peripheral swelling [Unknown]
  - Drug ineffective [Unknown]
  - Body mass index increased [Not Recovered/Not Resolved]
  - Gastrooesophageal reflux disease [Not Recovered/Not Resolved]
  - Emotional disorder [Unknown]
  - Pain in extremity [Unknown]
  - Hot flush [Unknown]
  - Breast pain [Unknown]
  - Abdominal discomfort [Unknown]
  - Hypotension [Unknown]
  - Fatigue [Not Recovered/Not Resolved]
  - Depression [Not Recovered/Not Resolved]
  - Oxygen saturation decreased [Unknown]
  - Chest pain [Unknown]

NARRATIVE: CASE EVENT DATE: 2019
